FAERS Safety Report 12759866 (Version 1)
Quarter: 2016Q3

REPORT INFORMATION
  Report Type: Spontaneous
  Country: BR (occurrence: BR)
  Receive Date: 20160919
  Receipt Date: 20160919
  Transmission Date: 20161109
  Serious: Yes (Other)
  Sender: FDA-Public Use
  Company Number: BR-JNJFOC-20131009640

PATIENT
  Sex: Male
  Weight: 58 kg

DRUGS (1)
  1. CONCERTA [Suspect]
     Active Substance: METHYLPHENIDATE HYDROCHLORIDE
     Indication: ATTENTION DEFICIT/HYPERACTIVITY DISORDER
     Route: 048
     Dates: start: 2010, end: 2013

REACTIONS (8)
  - Syncope [Unknown]
  - Thalassaemia [Unknown]
  - Depression [Recovered/Resolved]
  - Weight decreased [Recovered/Resolved]
  - Left ventricular hypertrophy [Unknown]
  - Drug dose omission [Unknown]
  - Decreased appetite [Recovered/Resolved]
  - Hypertension [Unknown]

NARRATIVE: CASE EVENT DATE: 2010
